FAERS Safety Report 5456728-8 (Version None)
Quarter: 2007Q3

REPORT INFORMATION
  Report Type: 
  Country: None (occurrence: None)
  Receive Date: 20070918
  Receipt Date: 20061122
  Transmission Date: 20080115
  Serious: No
  Sender: FDA-Public Use
  Company Number: US-ASTRAZENECA-2006UW26046

PATIENT
  Age: 65 Year
  Sex: Female
  Weight: 45.4 kg

DRUGS (5)
  1. SEROQUEL [Suspect]
     Indication: SLEEP DISORDER
     Route: 048
  2. DEPAKOTE [Concomitant]
  3. DIOVAN [Concomitant]
  4. RESTORIL [Concomitant]
  5. INSULIN [Concomitant]

REACTIONS (5)
  - DISTURBANCE IN ATTENTION [None]
  - DIZZINESS [None]
  - HYPOAESTHESIA [None]
  - INSOMNIA [None]
  - MOOD ALTERED [None]
